FAERS Safety Report 23043887 (Version 1)
Quarter: 2023Q4

REPORT INFORMATION
  Report Type: Spontaneous
  Country: US (occurrence: US)
  Receive Date: 20231009
  Receipt Date: 20231009
  Transmission Date: 20240110
  Serious: Yes (Other)
  Sender: FDA-Public Use
  Company Number: US-HETERO-HET2023US02858

PATIENT
  Age: 83 Year
  Sex: Male

DRUGS (2)
  1. COLCHICINE [Suspect]
     Active Substance: COLCHICINE
     Indication: Gout
     Dosage: UNK
     Route: 065
  2. DABIGATRAN [Concomitant]
     Active Substance: DABIGATRAN
     Indication: Ischaemic stroke
     Dosage: UNK,DABIGATRAN FOR 7 DAYS, RESTARTING 2 DAYS BEFORE THE AIS PRESENTATION
     Route: 065

REACTIONS (1)
  - Melaena [Unknown]
